FAERS Safety Report 4809926-8 (Version None)
Quarter: 2005Q4

REPORT INFORMATION
  Report Type: 
  Country: None (occurrence: None)
  Receive Date: 20051024
  Receipt Date: 20051011
  Transmission Date: 20060501
  Serious: Yes (Other)
  Sender: FDA-Public Use
  Company Number: 200512069BWH

PATIENT
  Sex: Female

DRUGS (1)
  1. AVELOX [Suspect]
     Indication: SINUSITIS
     Dates: start: 20031101

REACTIONS (6)
  - AMNESIA [None]
  - DIZZINESS POSTURAL [None]
  - FALL [None]
  - FOOT FRACTURE [None]
  - NAUSEA [None]
  - VERTIGO [None]
